FAERS Safety Report 4421772-6 (Version None)
Quarter: 2004Q3

REPORT INFORMATION
  Report Type: 
  Country: None (occurrence: None)
  Receive Date: 20040806
  Receipt Date: 20040720
  Transmission Date: 20050211
  Serious: Yes (Other)
  Sender: FDA-Public Use
  Company Number: USA040465880

PATIENT
  Age: 85 Year
  Sex: Female
  Weight: 64 kg

DRUGS (10)
  1. FORTEO [Suspect]
     Indication: OSTEOPOROSIS
     Dosage: 20 UG DAY
     Dates: start: 20040419
  2. ASPIRIN [Concomitant]
  3. OCTOVIT [Concomitant]
  4. VASOTEC [Concomitant]
  5. LOPRESSOR [Concomitant]
  6. CELEBREX [Concomitant]
  7. OCUVITE [Concomitant]
  8. ZANTAC [Concomitant]
  9. CALCIUM [Concomitant]
  10. DARVOCET-N 100 [Concomitant]

REACTIONS (9)
  - CONDITION AGGRAVATED [None]
  - DIARRHOEA [None]
  - EXOSTOSIS [None]
  - PAIN IN EXTREMITY [None]
  - PHARMACEUTICAL PRODUCT COMPLAINT [None]
  - RETINAL HAEMORRHAGE [None]
  - SCOTOMA [None]
  - VISUAL ACUITY REDUCED [None]
  - VISUAL DISTURBANCE [None]
